FAERS Safety Report 8621648-4 (Version None)
Quarter: 2012Q3

REPORT INFORMATION
  Report Type: 
  Country: None (occurrence: None)
  Receive Date: 20120820
  Receipt Date: 20120820
  Transmission Date: 20120928
  Serious: Yes (Other)
  Sender: FDA-Public Use
  Company Number: None

PATIENT
  Age: 54 Year
  Sex: Female
  Weight: 72.5755 kg

DRUGS (2)
  1. PRIFTIN [Suspect]
     Indication: EXPOSURE TO COMMUNICABLE DISEASE
     Dosage: 900 MG 8 WK, PO
     Route: 048
     Dates: start: 20120628
  2. INH [Suspect]
     Dosage: 900MG 8 WK, PO
     Route: 048
     Dates: start: 20120802

REACTIONS (8)
  - PYREXIA [None]
  - FEELING COLD [None]
  - ASTHENIA [None]
  - VOMITING [None]
  - DIARRHOEA [None]
  - NAUSEA [None]
  - ORAL HERPES [None]
  - RASH [None]
